FAERS Safety Report 4301772-7 (Version None)
Quarter: 2004Q1

REPORT INFORMATION
  Report Type: 
  Country: None (occurrence: None)
  Receive Date: 20040126
  Receipt Date: 20031007
  Transmission Date: 20041129
  Serious: No
  Sender: FDA-Public Use
  Company Number: USA031049212

PATIENT
  Age: 7 Year
  Sex: Male
  Weight: 18 kg

DRUGS (3)
  1. STRATTERA [Suspect]
     Dosage: 25 MG/ IN THE MORNING
     Dates: start: 20030901
  2. CONCERTA [Concomitant]
  3. ZYRTEC [Concomitant]

REACTIONS (2)
  - CRYING [None]
  - PSYCHOMOTOR HYPERACTIVITY [None]
